FAERS Safety Report 6208885-3 (Version None)
Quarter: 2009Q2

REPORT INFORMATION
  Report Type: 
  Country: None (occurrence: None)
  Receive Date: 20090529
  Receipt Date: 20090525
  Transmission Date: 20091009
  Serious: Yes (Hospitalization)
  Sender: FDA-Public Use
  Company Number: B0575371A

PATIENT
  Sex: Male

DRUGS (2)
  1. KIVEXA [Suspect]
     Indication: HIV INFECTION
     Route: 048
     Dates: start: 20090101
  2. SUBUTEX [Concomitant]
     Dates: start: 19960101

REACTIONS (7)
  - ACUTE CORONARY SYNDROME [None]
  - ANOREXIA [None]
  - CHEST PAIN [None]
  - HEADACHE [None]
  - MYOCARDIAL INFARCTION [None]
  - NAUSEA [None]
  - VOMITING [None]
